FAERS Safety Report 6959138-7 (Version None)
Quarter: 2010Q3

REPORT INFORMATION
  Report Type: 
  Country: None (occurrence: None)
  Receive Date: 20100827
  Receipt Date: 20100812
  Transmission Date: 20110219
  Serious: Yes (Hospitalization)
  Sender: FDA-Public Use
  Company Number: 000866

PATIENT
  Sex: Female
  Weight: 129.2752 kg

DRUGS (4)
  1. LACOSAMIDE [Suspect]
     Indication: CONVULSION
     Dosage: (400 MG QD ORAL)
     Route: 048
     Dates: start: 20090109
  2. ADVIL /00109201/ [Concomitant]
  3. PRENATAL VITAMINS /01549301/ [Concomitant]
  4. LORTAB [Concomitant]

REACTIONS (8)
  - ABDOMINAL PAIN LOWER [None]
  - BLOOD URIC ACID INCREASED [None]
  - CAESAREAN SECTION [None]
  - DRUG EXPOSURE DURING PREGNANCY [None]
  - POLYHYDRAMNIOS [None]
  - PRE-ECLAMPSIA [None]
  - PREGNANCY [None]
  - SLEEP APNOEA SYNDROME [None]
